FAERS Safety Report 7531333-8 (Version None)
Quarter: 2011Q2

REPORT INFORMATION
  Report Type: 
  Country: None (occurrence: None)
  Receive Date: 20110608
  Receipt Date: 20110527
  Transmission Date: 20111010
  Serious: Yes (Hospitalization)
  Sender: FDA-Public Use
  Company Number: CA-SOLVAY-00211004272

PATIENT
  Age: 76 Year
  Sex: Female
  Weight: 73 kg

DRUGS (7)
  1. HYDROCHLOROTHIAZIDE [Concomitant]
     Indication: PRODUCT USED FOR UNKNOWN INDICATION
     Dosage: DAILY DOSE:  UNKNOWN
     Route: 065
  2. GLUCOPHAGE [Suspect]
     Indication: DIABETES MELLITUS
     Dosage: DAILY DOSE: 1700 MILLIGRAM(S)
     Route: 065
  3. INDAPAMIDE [Suspect]
     Indication: HYPERTENSION
     Dosage: DAILY DOSE: 2.5 MILLIGRAM(S)
     Route: 048
  4. ASPIRIN [Concomitant]
     Indication: PRODUCT USED FOR UNKNOWN INDICATION
     Dosage: DAILY DOSE:  UNKNOWN
     Route: 065
  5. PERINDOPRIL ERBUMINE [Suspect]
     Indication: PRODUCT USED FOR UNKNOWN INDICATION
     Dosage: DAILY DOSE:  UNKNOWN
     Route: 065
  6. DIOVAN [Suspect]
     Indication: HYPERTENSION
     Dosage: DAILY DOSE: 80 MILLIGRAM(S)
     Route: 065
  7. LIPITOR [Suspect]
     Indication: PRODUCT USED FOR UNKNOWN INDICATION
     Dosage: DAILY DOSE: 10 MILLIGRAM(S)
     Route: 048

REACTIONS (3)
  - COUGH [None]
  - THROAT IRRITATION [None]
  - TACHYCARDIA [None]
